FAERS Safety Report 5631901-4 (Version None)
Quarter: 2008Q1

REPORT INFORMATION
  Report Type: 
  Country: None (occurrence: None)
  Receive Date: 20080220
  Receipt Date: 20080207
  Transmission Date: 20080703
  Serious: Yes (Life-Threatening)
  Sender: FDA-Public Use
  Company Number: JP-BAYER-200710829BYL

PATIENT
  Age: 81 Year
  Sex: Female

DRUGS (4)
  1. GLUCOBAY [Suspect]
     Indication: DIABETES MELLITUS
     Dosage: TOTAL DAILY DOSE: 300 MG  UNIT DOSE: 100 MG
     Route: 048
     Dates: end: 20071030
  2. TORSEMIDE [Concomitant]
     Dosage: TOTAL DAILY DOSE: 4 MG
     Route: 048
     Dates: start: 20061006, end: 20071030
  3. TRIAZOLAM [Concomitant]
     Dosage: TOTAL DAILY DOSE: 0.25 MG
     Route: 048
     Dates: start: 20061006, end: 20071030
  4. SENNARIDE [Concomitant]
     Indication: CONSTIPATION
     Dosage: TOTAL DAILY DOSE: 36 MG
     Route: 048
     Dates: end: 20071030

REACTIONS (1)
  - INTESTINAL OBSTRUCTION [None]
